FAERS Safety Report 22144624 (Version 2)
Quarter: 2023Q4

REPORT INFORMATION
  Report Type: Other
  Country: US (occurrence: US)
  Receive Date: 20230328
  Receipt Date: 20231214
  Transmission Date: 20240110
  Serious: Yes (Death, Hospitalization, Other)
  Sender: FDA-Public Use
  Company Number: US-INTERCEPT-PM2023000586

PATIENT
  Age: 71 Year
  Sex: Female

DRUGS (2)
  1. OCALIVA [Suspect]
     Active Substance: OBETICHOLIC ACID
     Indication: Primary biliary cholangitis
     Dosage: 5 MG, QD
     Route: 048
     Dates: start: 20181206
  2. ASPIRIN [Concomitant]
     Active Substance: ASPIRIN

REACTIONS (19)
  - Subdural haematoma [Fatal]
  - Fall [Unknown]
  - Craniocerebral injury [Unknown]
  - Subdural haemorrhage [Unknown]
  - Subarachnoid haemorrhage [Unknown]
  - Cerebral haemorrhage [Unknown]
  - Intraventricular haemorrhage [Unknown]
  - Brain compression [Unknown]
  - Brain oedema [Unknown]
  - Acute respiratory failure [Unknown]
  - Diabetic ketoacidosis [Unknown]
  - Coma [Unknown]
  - Decompressive craniectomy [Unknown]
  - Brain lobectomy [Unknown]
  - Subdural haematoma evacuation [Unknown]
  - Hyperglycaemia [Unknown]
  - Bradycardia [Unknown]
  - Endotracheal intubation [Unknown]
  - Mechanical ventilation [Unknown]

NARRATIVE: CASE EVENT DATE: 20221201
